FAERS Safety Report 9536780 (Version 1)
Quarter: 2013Q3

REPORT INFORMATION
  Report Type: Spontaneous
  Country: US (occurrence: None)
  Receive Date: 20130918
  Receipt Date: 20130918
  Transmission Date: 20140515
  Serious: Yes (Hospitalization)
  Sender: FDA-Public Use
  Company Number: None

PATIENT
  Age: 48 Year
  Sex: Male
  Weight: 85.6 kg

DRUGS (2)
  1. ETOPOSIDE [Suspect]
     Indication: BURKITT^S LYMPHOMA
     Route: 042
     Dates: start: 20130828, end: 20130901
  2. IFOSFAMIDE [Suspect]
     Route: 042
     Dates: start: 20130828, end: 20130828

REACTIONS (3)
  - Haematuria [None]
  - Pancytopenia [None]
  - Condition aggravated [None]
